FAERS Safety Report 5744247-0 (Version None)
Quarter: 2008Q2

REPORT INFORMATION
  Report Type: 
  Country: None (occurrence: None)
  Receive Date: 20080520
  Receipt Date: 20080515
  Transmission Date: 20081010
  Serious: Yes (Hospitalization)
  Sender: FDA-Public Use
  Company Number: AU-AVENTIS-200812092EU

PATIENT
  Age: 13 Year
  Sex: Female

DRUGS (3)
  1. CLEXANE [Suspect]
     Route: 058
     Dates: start: 20041120, end: 20041124
  2. HEPARIN [Concomitant]
  3. DICLOXACILLIN [Concomitant]
     Indication: WOUND INFECTION
     Route: 048

REACTIONS (1)
  - VASOSPASM [None]
